FAERS Safety Report 9835302 (Version 1)
Quarter: 2014Q1

REPORT INFORMATION
  Report Type: Spontaneous
  Country: US (occurrence: US)
  Receive Date: 20140122
  Receipt Date: 20140122
  Transmission Date: 20141002
  Serious: No
  Sender: FDA-Public Use
  Company Number: US-BRISTOL-MYERS SQUIBB COMPANY-19925775

PATIENT
  Age: 69 Year
  Sex: Male

DRUGS (4)
  1. ELIQUIS [Suspect]
     Dates: start: 201311
  2. AMLODIPINE [Concomitant]
  3. PENTASA [Concomitant]
  4. CANASA [Concomitant]

REACTIONS (1)
  - Arthralgia [Unknown]
